FAERS Safety Report 25944837 (Version 1)
Quarter: 2025Q4

REPORT INFORMATION
  Report Type: Spontaneous
  Country: US (occurrence: US)
  Receive Date: 20251021
  Receipt Date: 20251021
  Transmission Date: 20260117
  Serious: No
  Sender: Phathom Pharmaceuticals
  Company Number: US-PHATHOM PHARMACEUTICALS INC.-2025PHT02329

PATIENT
  Age: 80 Year
  Sex: Male

DRUGS (6)
  1. VOQUEZNA [Suspect]
     Active Substance: VONOPRAZAN FUMARATE
     Dosage: 20 MG, 1X/DAY
     Route: 048
     Dates: start: 20250725, end: 20250731
  2. VITAMIN D [Concomitant]
     Active Substance: VITAMIN D NOS
  3. GARLIC [Concomitant]
     Active Substance: GARLIC
  4. FINASTERIDE [Concomitant]
     Active Substance: FINASTERIDE
  5. ROSUVASTATIN [Concomitant]
     Active Substance: ROSUVASTATIN
  6. LOSARTAN [Concomitant]
     Active Substance: LOSARTAN

REACTIONS (3)
  - Nasal discomfort [Unknown]
  - Throat irritation [Unknown]
  - Gastrooesophageal reflux disease [Unknown]

NARRATIVE: CASE EVENT DATE: 20250701
